FAERS Safety Report 19357400 (Version 1)
Quarter: 2021Q2

REPORT INFORMATION
  Report Type: Spontaneous
  Country: MY (occurrence: MY)
  Receive Date: 20210601
  Receipt Date: 20210601
  Transmission Date: 20210717
  Serious: Yes (Other)
  Sender: FDA-Public Use
  Company Number: MY-LUPIN PHARMACEUTICALS INC.-2021-07943

PATIENT
  Age: 26 Year
  Sex: Female

DRUGS (7)
  1. QUETIAPINE. [Suspect]
     Active Substance: QUETIAPINE
     Indication: ANTIDEPRESSANT THERAPY
     Dosage: 200 MILLIGRAM, QD (BEDTIME)
     Route: 065
  2. OLANZAPINE. [Suspect]
     Active Substance: OLANZAPINE
     Indication: DEPRESSIVE SYMPTOM
  3. QUETIAPINE. [Suspect]
     Active Substance: QUETIAPINE
     Indication: MAJOR DEPRESSION
     Dosage: TAPERED DOWN
     Route: 065
  4. DULOXETINE. [Suspect]
     Active Substance: DULOXETINE
     Indication: DEPRESSIVE SYMPTOM
     Dosage: 60 MILLIGRAM
     Route: 065
  5. QUETIAPINE. [Suspect]
     Active Substance: QUETIAPINE
     Indication: POOR QUALITY SLEEP
  6. OLANZAPINE. [Suspect]
     Active Substance: OLANZAPINE
     Indication: POOR QUALITY SLEEP
     Dosage: 5 MILLIGRAM, QD
     Route: 065
  7. CLONAZEPAM. [Concomitant]
     Active Substance: CLONAZEPAM
     Indication: MAJOR DEPRESSION
     Dosage: 2 MILLIGRAM
     Route: 065

REACTIONS (4)
  - Drug ineffective [Recovered/Resolved]
  - Sleep-related eating disorder [Recovered/Resolved]
  - Weight increased [Unknown]
  - Off label use [Unknown]
